FAERS Safety Report 14521322 (Version 3)
Quarter: 2018Q2

REPORT INFORMATION
  Report Type: Report from Study
  Country: DE (occurrence: DE)
  Receive Date: 20180212
  Receipt Date: 20180411
  Transmission Date: 20180711
  Serious: Yes (Disabling, Other)
  Sender: FDA-Public Use
  Company Number: PHHY2018DE019338

PATIENT
  Sex: Male
  Weight: 98 kg

DRUGS (3)
  1. GLIVEC [Suspect]
     Active Substance: IMATINIB MESYLATE
     Indication: CHRONIC MYELOID LEUKAEMIA
     Dosage: 400 MG, QD
     Route: 065
     Dates: start: 200309, end: 2016
  2. ASA [Concomitant]
     Active Substance: ASPIRIN
     Indication: ATRIAL FIBRILLATION
     Dosage: 300 MG, QD
     Route: 065
     Dates: start: 1992
  3. GLIVEC [Suspect]
     Active Substance: IMATINIB MESYLATE
     Dosage: 400 MG, QD
     Route: 065

REACTIONS (8)
  - Arthralgia [Unknown]
  - Osteoarthritis [Unknown]
  - Polyneuropathy [Unknown]
  - Osteochondrosis [Unknown]
  - Spinal flattening [Unknown]
  - Myalgia [Unknown]
  - Neuropathy peripheral [Unknown]
  - Spinal column stenosis [Unknown]

NARRATIVE: CASE EVENT DATE: 200310
